FAERS Safety Report 13424789 (Version 6)
Quarter: 2017Q4

REPORT INFORMATION
  Report Type: Spontaneous
  Country: US (occurrence: US)
  Receive Date: 20170410
  Receipt Date: 20171026
  Transmission Date: 20180320
  Serious: Yes (Hospitalization)
  Sender: FDA-Public Use
  Company Number: US-ACTELION-A-US2017-152217

PATIENT
  Age: 72 Year
  Sex: Female
  Weight: 74.38 kg

DRUGS (4)
  1. REVATIO [Concomitant]
     Active Substance: SILDENAFIL CITRATE
  2. OPSUMIT [Suspect]
     Active Substance: MACITENTAN
     Indication: PULMONARY ARTERIAL HYPERTENSION
     Dosage: 10 MG, QD
     Route: 048
  3. FLOLAN [Concomitant]
     Active Substance: EPOPROSTENOL SODIUM
  4. COUMADIN [Concomitant]
     Active Substance: WARFARIN SODIUM
     Dosage: UNK

REACTIONS (8)
  - Dyspnoea [Unknown]
  - Device related infection [Unknown]
  - Oedema peripheral [Unknown]
  - Fall [Unknown]
  - Blood blister [Unknown]
  - Faeces discoloured [Unknown]
  - Haemorrhage [Unknown]
  - Cellulitis [Unknown]
